FAERS Safety Report 9186352 (Version 1)
Quarter: 2013Q1

REPORT INFORMATION
  Report Type: Spontaneous
  Country: US (occurrence: None)
  Receive Date: 20130321
  Receipt Date: 20130321
  Transmission Date: 20140127
  Serious: Yes (Hospitalization)
  Sender: FDA-Public Use
  Company Number: 2013AP003658

PATIENT
  Sex: 0

DRUGS (1)
  1. METFORMIN HCL [Suspect]

REACTIONS (2)
  - Renal disorder [None]
  - Renal injury [None]
